FAERS Safety Report 25366031 (Version 1)
Quarter: 2025Q2

REPORT INFORMATION
  Report Type: Spontaneous
  Country: GB (occurrence: GB)
  Receive Date: 20250528
  Receipt Date: 20250528
  Transmission Date: 20250716
  Serious: Yes (Hospitalization, Other)
  Sender: ACCORD
  Company Number: None

PATIENT
  Age: 64 Year
  Sex: Female

DRUGS (23)
  1. EPLERENONE [Suspect]
     Active Substance: EPLERENONE
     Indication: Product used for unknown indication
     Dosage: 25 MG TABLETS ONE TO BE TAKEN IN THE MORNING
  2. RAMIPRIL [Suspect]
     Active Substance: RAMIPRIL
     Indication: Product used for unknown indication
     Dosage: STRENGTH: 2.5 MG, TWICE A AAY - REDUCE AND DOSE CHANGED TO NIGHT
  3. NITROGLYCERIN [Suspect]
     Active Substance: NITROGLYCERIN
     Indication: Chest pain
  4. BISOPROLOL [Suspect]
     Active Substance: BISOPROLOL
     Indication: Product used for unknown indication
     Dosage: 2.5 MG TABLETS TAKE ONE TABLET DAILY
  5. BUMETANIDE [Suspect]
     Active Substance: BUMETANIDE
     Indication: Product used for unknown indication
     Dosage: 1 MG TABLETS TAKE ONE IN THE MORNING AND ONE AT LUNCHTIME
     Dates: start: 20250428
  6. ATORVASTATIN [Concomitant]
     Active Substance: ATORVASTATIN
  7. LORATADINE [Concomitant]
     Active Substance: LORATADINE
  8. ZOPICLONE [Concomitant]
     Active Substance: ZOPICLONE
  9. CALCIUM CARBONATE\CHOLECALCIFEROL [Concomitant]
     Active Substance: CALCIUM CARBONATE\CHOLECALCIFEROL
  10. PREGABALIN [Concomitant]
     Active Substance: PREGABALIN
  11. FOLIC ACID [Concomitant]
     Active Substance: FOLIC ACID
  12. LANSOPRAZOLE [Concomitant]
     Active Substance: LANSOPRAZOLE
  13. CLOTRIMAZOLE [Concomitant]
     Active Substance: CLOTRIMAZOLE
  14. ALLOPURINOL [Concomitant]
     Active Substance: ALLOPURINOL
     Dates: start: 20250428
  15. BECLOMETASONE, FORMOTEROL, GLYCOPYRRONIUM [Concomitant]
  16. CLOPIDOGREL [Concomitant]
     Active Substance: CLOPIDOGREL BISULFATE
  17. DAPAGLIFLOZIN [Concomitant]
     Active Substance: DAPAGLIFLOZIN
  18. ASPIRIN [Concomitant]
     Active Substance: ASPIRIN
  19. DOXYCYCLINE [Concomitant]
     Active Substance: DOXYCYCLINE
  20. INSULIN ASPART [Concomitant]
     Active Substance: INSULIN ASPART
  21. FLUCONAZOLE [Concomitant]
     Active Substance: FLUCONAZOLE
  22. DIHYDROCODEINE [Concomitant]
     Active Substance: DIHYDROCODEINE
  23. ALBUTEROL [Concomitant]
     Active Substance: ALBUTEROL

REACTIONS (3)
  - Dizziness [Unknown]
  - Femoral neck fracture [Unknown]
  - Fall [Recovered/Resolved]
